FAERS Safety Report 21274538 (Version 1)
Quarter: 2022Q3

REPORT INFORMATION
  Report Type: Spontaneous
  Country: FR (occurrence: FR)
  Receive Date: 20220831
  Receipt Date: 20220831
  Transmission Date: 20221027
  Serious: No
  Sender: FDA-Public Use
  Company Number: None

PATIENT
  Age: 24 Year
  Sex: Male

DRUGS (1)
  1. OLANZAPINE [Suspect]
     Active Substance: OLANZAPINE
     Indication: Behaviour disorder
     Dosage: 30 MG, DAILY
     Route: 048
     Dates: start: 20220628, end: 20220709

REACTIONS (3)
  - Condition aggravated [Recovered/Resolved]
  - Thrombocytopenia [Recovered/Resolved]
  - Overdose [Unknown]

NARRATIVE: CASE EVENT DATE: 20220701
